FAERS Safety Report 6051628-7 (Version None)
Quarter: 2009Q1

REPORT INFORMATION
  Report Type: 
  Country: None (occurrence: None)
  Receive Date: 20090126
  Receipt Date: 20090115
  Transmission Date: 20090719
  Serious: Yes (Hospitalization, Disabling)
  Sender: FDA-Public Use
  Company Number: US-MERCK-0810USA03094

PATIENT
  Sex: Female

DRUGS (5)
  1. FOSAMAX [Suspect]
     Indication: OSTEOPENIA
     Route: 048
     Dates: start: 20041012, end: 20070329
  2. FOSAMAX [Suspect]
     Indication: OSTEOPOROSIS
     Route: 048
     Dates: start: 20041012, end: 20070329
  3. FOSAMAX PLUS D [Suspect]
     Route: 048
  4. [THERAPY UNSPECIFIED] [Concomitant]
     Indication: HYPERTENSION
     Route: 065
     Dates: start: 19991201
  5. INTERFERON (UNSPECIFIED) [Suspect]
     Route: 065

REACTIONS (24)
  - ACNE [None]
  - ADVERSE EVENT [None]
  - ANAEMIA [None]
  - BACK INJURY [None]
  - CONJUNCTIVITIS [None]
  - COUGH [None]
  - DRY SKIN [None]
  - DYSPHAGIA [None]
  - HEPATITIS C [None]
  - HYPERSENSITIVITY [None]
  - INFECTION [None]
  - INFLAMMATION [None]
  - JAW DISORDER [None]
  - JAW FRACTURE [None]
  - LENTIGO [None]
  - MYALGIA [None]
  - NASAL CONGESTION [None]
  - ORAL TORUS [None]
  - OSTEONECROSIS [None]
  - PAIN [None]
  - RESORPTION BONE INCREASED [None]
  - RESPIRATORY TRACT CONGESTION [None]
  - RHINITIS ALLERGIC [None]
  - SINUS DISORDER [None]
